FAERS Safety Report 25993499 (Version 1)
Quarter: 2025Q4

REPORT INFORMATION
  Report Type: Spontaneous
  Country: EU (occurrence: EU)
  Receive Date: 20251104
  Receipt Date: 20251104
  Transmission Date: 20260118
  Serious: Yes (Hospitalization, Other)
  Sender: PURACAP PHARMACEUTICAL LLC
  Company Number: EU-PURACAP-PL-2025EPCLIT01189

PATIENT
  Age: 75 Year
  Sex: Male

DRUGS (1)
  1. ALLOPURINOL [Suspect]
     Active Substance: ALLOPURINOL
     Indication: Product used for unknown indication
     Dosage: 2 YEARS PREVIOUSLY
     Route: 065

REACTIONS (12)
  - Symblepharon [Unknown]
  - Corneal neovascularisation [Not Recovered/Not Resolved]
  - Iridocele [Unknown]
  - Aphakia [Unknown]
  - Corneal perforation [Unknown]
  - Entropion [Not Recovered/Not Resolved]
  - Meibomian gland dysfunction [Not Recovered/Not Resolved]
  - Conjunctival scar [Not Recovered/Not Resolved]
  - Trichiasis [Unknown]
  - Pseudophakia [Unknown]
  - Toxic epidermal necrolysis [Unknown]
  - Stevens-Johnson syndrome [Unknown]
